FAERS Safety Report 17791502 (Version 2)
Quarter: 2021Q2

REPORT INFORMATION
  Report Type: Spontaneous
  Country: US (occurrence: US)
  Receive Date: 20200515
  Receipt Date: 20210526
  Transmission Date: 20210716
  Serious: No
  Sender: FDA-Public Use
  Company Number: US-BIOGEN-2020BI00874408

PATIENT
  Sex: Male

DRUGS (1)
  1. TECFIDERA [Suspect]
     Active Substance: DIMETHYL FUMARATE
     Indication: MULTIPLE SCLEROSIS
     Route: 048
     Dates: start: 20140613, end: 20190701

REACTIONS (5)
  - Cognitive disorder [Not Recovered/Not Resolved]
  - Speech disorder [Recovered/Resolved]
  - Diplopia [Recovered/Resolved]
  - Product dose omission in error [Recovered/Resolved]
  - Dysphemia [Unknown]
